FAERS Safety Report 10094429 (Version 3)
Quarter: 2014Q2

REPORT INFORMATION
  Report Type: Spontaneous
  Country: CA (occurrence: CA)
  Receive Date: 20140422
  Receipt Date: 20140523
  Transmission Date: 20141212
  Serious: Yes (Other)
  Sender: FDA-Public Use
  Company Number: CA-AMGEN-CANSP2013042276

PATIENT
  Age: 63 Year
  Sex: Male

DRUGS (12)
  1. ENBREL [Suspect]
     Indication: RHEUMATOID ARTHRITIS
     Dosage: 50 MG, QWK
     Route: 058
     Dates: start: 20120120
  2. ENBREL [Suspect]
     Dosage: UNK
     Route: 065
  3. PREDNISONE [Suspect]
     Indication: LUNG INFECTION
     Dosage: UNK
     Route: 065
  4. MTX                                /00113801/ [Concomitant]
     Indication: RHEUMATOID ARTHRITIS
     Dosage: 12.5 MG, QWK
     Route: 048
  5. FOLIC ACID [Concomitant]
     Dosage: UNK
  6. ALENDRONATE [Concomitant]
     Indication: OSTEOPOROSIS
     Dosage: 20 MG, QWK
     Route: 048
  7. TECTA [Concomitant]
     Dosage: UNK
  8. CLONAZEPAM [Concomitant]
     Dosage: UNK
  9. VIT D [Concomitant]
     Dosage: UNK
  10. ZOPLICONE [Concomitant]
     Dosage: UNK
  11. TEMAZEPAM [Concomitant]
     Dosage: UNK
  12. ELAVIL                             /00002202/ [Concomitant]
     Dosage: UNK

REACTIONS (10)
  - Pleural effusion [Recovered/Resolved]
  - Lung infection [Recovered/Resolved]
  - Pulmonary mycosis [Recovered/Resolved]
  - Wheezing [Recovering/Resolving]
  - Dyspnoea [Unknown]
  - Productive cough [Not Recovered/Not Resolved]
  - Weight increased [Unknown]
  - Productive cough [Not Recovered/Not Resolved]
  - Bronchitis [Recovered/Resolved]
  - Nasopharyngitis [Not Recovered/Not Resolved]
